FAERS Safety Report 6372682-9 (Version None)
Quarter: 2009Q3

REPORT INFORMATION
  Report Type: 
  Country: None (occurrence: None)
  Receive Date: 20090924
  Receipt Date: 20090706
  Transmission Date: 20100115
  Serious: Yes (Hospitalization, Other)
  Sender: FDA-Public Use
  Company Number: US-ASTRAZENECA-2008UW27517

PATIENT
  Age: 18063 Day
  Sex: Female
  Weight: 109.8 kg

DRUGS (9)
  1. SEROQUEL [Suspect]
     Indication: SLEEP DISORDER
     Dosage: 200 MG 300 MG, ONE AT BEDTIME
     Route: 048
     Dates: start: 20040101
  2. SEROQUEL [Suspect]
     Indication: CONVULSION
     Dosage: 200 MG 300 MG, ONE AT BEDTIME
     Route: 048
     Dates: start: 20040101
  3. SEROQUEL [Suspect]
     Indication: ANXIETY
     Dosage: 200 MG 300 MG, ONE AT BEDTIME
     Route: 048
     Dates: start: 20040101
  4. SEROQUEL [Suspect]
     Indication: BIPOLAR I DISORDER
     Dosage: 200 MG 300 MG, ONE AT BEDTIME
     Route: 048
     Dates: start: 20040101
  5. RISPERDAL [Concomitant]
     Dates: start: 20050101
  6. ZYPREXA [Concomitant]
     Dates: start: 20050101
  7. BUPROPION [Concomitant]
     Dates: start: 20020501
  8. DEPAKOTE [Concomitant]
     Dates: start: 20000101
  9. ZOLOFT [Concomitant]
     Dates: start: 20051220

REACTIONS (3)
  - DIABETES MELLITUS [None]
  - PANCREATITIS [None]
  - SUICIDE ATTEMPT [None]
